FAERS Safety Report 8998695 (Version 3)
Quarter: 2013Q1

REPORT INFORMATION
  Report Type: Report from Study
  Country: JP (occurrence: JP)
  Receive Date: 20130103
  Receipt Date: 20130131
  Transmission Date: 20140127
  Serious: Yes (Life-Threatening, Hospitalization)
  Sender: FDA-Public Use
  Company Number: JP-PFIZER INC-2012331531

PATIENT
  Age: 61 Year
  Sex: Female
  Weight: 43.3 kg

DRUGS (6)
  1. CRIZOTINIB [Suspect]
     Indication: NON-SMALL CELL LUNG CANCER
     Dosage: 250 MG, 2X/DAY
     Route: 048
     Dates: start: 20120710, end: 20121226
  2. MECOBALAMIN [Concomitant]
     Dosage: 500 UG, 3X/DAY
     Route: 048
     Dates: start: 20120106
  3. LYRICA [Concomitant]
     Dosage: 75 MG, 1X/DAY
     Route: 048
     Dates: start: 20120130
  4. PRIMPERAN [Concomitant]
     Dosage: 5 MG, 3X/DAY
     Route: 048
     Dates: start: 20120710
  5. BIOFERMIN [Concomitant]
     Dosage: UNK
     Route: 048
     Dates: start: 20120710
  6. WYPAX [Concomitant]
     Dosage: 0.5 MG, AS NEEDED
     Route: 048
     Dates: start: 20120705

REACTIONS (1)
  - Suicide attempt [Recovered/Resolved]
